FAERS Safety Report 17807298 (Version 1)
Quarter: 2020Q2

REPORT INFORMATION
  Report Type: Spontaneous
  Country: NO (occurrence: NO)
  Receive Date: 20200520
  Receipt Date: 20200520
  Transmission Date: 20200714
  Serious: Yes (Life-Threatening, Other)
  Sender: FDA-Public Use
  Company Number: NO-TEVA-2020-NO-1237041

PATIENT
  Sex: Female
  Weight: 67 kg

DRUGS (3)
  1. TURMERIC [Concomitant]
     Active Substance: HERBALS\TURMERIC
     Dosage: SMALL DOSES
     Dates: start: 2007
  2. METHOTREXATE (METHOTREXATE SODIUM) [Suspect]
     Active Substance: METHOTREXATE SODIUM
     Indication: SPONDYLITIS
     Dosage: 20 MG
     Route: 065
     Dates: start: 20150609, end: 20190624
  3. PLAQUENIL [Concomitant]
     Active Substance: HYDROXYCHLOROQUINE SULFATE
     Dates: start: 20200201

REACTIONS (8)
  - Decreased appetite [Not Recovered/Not Resolved]
  - Gingival discomfort [Recovering/Resolving]
  - Apathy [Not Recovered/Not Resolved]
  - Abdominal discomfort [Recovered/Resolved]
  - Sunburn [Recovering/Resolving]
  - Photophobia [Not Recovered/Not Resolved]
  - Cognitive disorder [Unknown]
  - Memory impairment [Not Recovered/Not Resolved]

NARRATIVE: CASE EVENT DATE: 20150629
